FAERS Safety Report 11014061 (Version 2)
Quarter: 2015Q2

REPORT INFORMATION
  Report Type: Spontaneous
  Country: US (occurrence: US)
  Receive Date: 20150412
  Receipt Date: 20150525
  Transmission Date: 20150821
  Serious: No
  Sender: FDA-Public Use
  Company Number: US-JNJFOC-20140908606

PATIENT
  Sex: Female
  Weight: 63.5 kg

DRUGS (4)
  1. HEPARIN [Suspect]
     Active Substance: HEPARIN SODIUM
     Indication: BLADDER PAIN
     Route: 065
     Dates: start: 2010
  2. OXYTRACIN [Concomitant]
     Indication: BLADDER PAIN
     Route: 065
     Dates: start: 2010
  3. DIMETHYL SULFOXIDE [Suspect]
     Active Substance: DIMETHYL SULFOXIDE
     Indication: BLADDER PAIN
     Route: 065
     Dates: start: 2010
  4. ELMIRON [Suspect]
     Active Substance: PENTOSAN POLYSULFATE SODIUM
     Indication: BLADDER PAIN
     Route: 065
     Dates: start: 2010

REACTIONS (1)
  - Inappropriate schedule of drug administration [Not Recovered/Not Resolved]
